FAERS Safety Report 7169494-5 (Version None)
Quarter: 2010Q4

REPORT INFORMATION
  Report Type: 
  Country: None (occurrence: None)
  Receive Date: 20101217
  Receipt Date: 20101209
  Transmission Date: 20110411
  Serious: Yes (Hospitalization)
  Sender: FDA-Public Use
  Company Number: US-BIOGENIDEC-2010BI043577

PATIENT
  Age: 29 Year
  Sex: Female

DRUGS (1)
  1. AVONEX [Suspect]
     Indication: MULTIPLE SCLEROSIS
     Route: 030
     Dates: end: 20050901

REACTIONS (8)
  - ARTHRALGIA [None]
  - DYSPHAGIA [None]
  - DYSPNOEA [None]
  - DYSURIA [None]
  - HEMIPARESIS [None]
  - HYPOAESTHESIA [None]
  - PAIN [None]
  - PARAESTHESIA [None]
